FAERS Safety Report 7243981-3 (Version None)
Quarter: 2011Q1

REPORT INFORMATION
  Report Type: 
  Country: None (occurrence: None)
  Receive Date: 20110125
  Receipt Date: 20110114
  Transmission Date: 20110831
  Serious: Yes (Hospitalization)
  Sender: FDA-Public Use
  Company Number: GXBR2011US00496

PATIENT
  Sex: Male
  Weight: 79.819 kg

DRUGS (10)
  1. BACLOFEN [Concomitant]
     Indication: HYPERTONIA
     Dosage: 10 MG, BID
     Dates: start: 20100501
  2. TYLENOL-500 [Concomitant]
     Indication: PAIN
     Dosage: UNK MG, PRN
  3. HYDROCORT [Concomitant]
     Indication: ADRENAL INSUFFICIENCY
     Dosage: 10MG QAM, 7.5MG QPM
     Dates: start: 20050101
  4. PRILOSEC [Concomitant]
     Indication: ABDOMINAL DISCOMFORT
     Dosage: UNK
  5. OMNITROPE [Suspect]
     Dosage: 3.6 MG, QD
     Route: 058
     Dates: start: 20110110, end: 20110113
  6. DESMOPRESSIN ACETATE [Concomitant]
     Indication: DIABETES INSIPIDUS
     Dosage: 0.05 MG QAM, 0.2MG QPM
     Dates: start: 20050101
  7. VITAMINS NOS [Concomitant]
     Indication: SUPPLEMENTATION THERAPY
     Dosage: UNK
  8. IBUPROFEN [Concomitant]
     Indication: PAIN
     Dosage: UNK MG, PRN
  9. OMNITROPE [Suspect]
     Indication: HYPOPITUITARISM
     Dosage: 3.3 MG, QD
     Route: 058
     Dates: start: 20101201, end: 20110109
  10. LEVOTHYROXINE SODIUM [Concomitant]
     Indication: HYPOTHYROIDISM
     Dosage: 125 UG, QD
     Dates: start: 20050101

REACTIONS (10)
  - NAUSEA [None]
  - OCULAR ICTERUS [None]
  - DYSARTHRIA [None]
  - DECREASED APPETITE [None]
  - BLOOD GLUCOSE INCREASED [None]
  - MYALGIA [None]
  - MUSCULAR WEAKNESS [None]
  - ABDOMINAL PAIN UPPER [None]
  - BLOOD SODIUM INCREASED [None]
  - DEHYDRATION [None]
